FAERS Safety Report 23047913 (Version 1)
Quarter: 2023Q4

REPORT INFORMATION
  Report Type: Other
  Country: US (occurrence: None)
  Receive Date: 20231010
  Receipt Date: 20231010
  Transmission Date: 20240109
  Serious: No
  Sender: FDA-Public Use
  Company Number: US-ROCHE-3434356

PATIENT
  Age: 12 Month
  Sex: Male

DRUGS (1)
  1. OCREVUS [Suspect]
     Active Substance: OCRELIZUMAB
     Indication: Product used for unknown indication
     Dosage: THAN TWO - 300 MG VIAL - 600 MG, NEXT INFUSION RECEIVED ON 12/NOV/2019, 28/MAY/2021, 20/NOV/2020, 08
     Route: 064

REACTIONS (2)
  - Foetal exposure during pregnancy [Unknown]
  - COVID-19 [Recovered/Resolved]
